FAERS Safety Report 20578825 (Version 1)
Quarter: 2022Q1

REPORT INFORMATION
  Report Type: Spontaneous
  Country: ES (occurrence: ES)
  Receive Date: 20220310
  Receipt Date: 20220310
  Transmission Date: 20220424
  Serious: Yes (Hospitalization)
  Sender: FDA-Public Use
  Company Number: None

PATIENT
  Age: 79 Year
  Sex: Female

DRUGS (6)
  1. DOXAZOSIN [Suspect]
     Active Substance: DOXAZOSIN MESYLATE
     Indication: Hypertension
     Dosage: 2.0 MG EVERY/24 H
     Route: 048
     Dates: start: 20200809, end: 20200810
  2. HYDROCHLOROTHIAZIDE [Suspect]
     Active Substance: HYDROCHLOROTHIAZIDE
     Indication: Hypertension
     Dosage: 12.5MG EVERY/24H
     Route: 048
     Dates: start: 20200808, end: 20200810
  3. Paracetamol Tarbis Farma [Concomitant]
     Indication: Pain
     Dosage: 1 G TABLETS EFG, 40 TABLETS?1.0G EVERY/72 HOURS
     Route: 048
     Dates: start: 20100409
  4. LEVOTHYROXINE SODIUM [Concomitant]
     Active Substance: LEVOTHYROXINE SODIUM
     Indication: Hypothyroidism
     Dosage: 88 MICROGRAMS TABLETS, 100 TABLETS?88.0 MCG AT-BREAKFAST
     Route: 048
     Dates: start: 20150603
  5. Omeprazole Cinfa [Concomitant]
     Indication: Hypertension
     Dosage: 20.0 MG AT-BREAKFAST?20 MG GASTRO-RESISTANT HARD CAPSULES EFG, 56 CAPSULES (VIAL)
     Route: 048
     Dates: start: 20100409
  6. SIMVASTATIN [Concomitant]
     Active Substance: SIMVASTATIN
     Indication: Hypercholesterolaemia
     Dosage: 10 MG FILM-COATED TABLETS EFG, 28 TABLETS?10.0 MG DINNER
     Route: 048
     Dates: start: 20120801

REACTIONS (2)
  - Hyponatraemia [Recovered/Resolved]
  - Orthostatic hypotension [Recovered/Resolved]

NARRATIVE: CASE EVENT DATE: 20200810
